FAERS Safety Report 4877444-7 (Version None)
Quarter: 2006Q1

REPORT INFORMATION
  Report Type: 
  Country: None (occurrence: None)
  Receive Date: 20060111
  Receipt Date: 20060103
  Transmission Date: 20060701
  Serious: Yes (Other)
  Sender: FDA-Public Use
  Company Number: 2006UW00185

PATIENT
  Age: 63 Year
  Sex: Male

DRUGS (1)
  1. IRESSA [Suspect]
     Indication: OROPHARYNGEAL CANCER RECURRENT
     Route: 048
     Dates: start: 20030724, end: 20031002

REACTIONS (5)
  - DISSEMINATED INTRAVASCULAR COAGULATION [None]
  - DYSPNOEA [None]
  - GASTRIC HAEMORRHAGE [None]
  - HAEMATEMESIS [None]
  - OESOPHAGEAL HAEMORRHAGE [None]
